FAERS Safety Report 5123384-8 (Version None)
Quarter: 2006Q4

REPORT INFORMATION
  Report Type: 
  Country: None (occurrence: None)
  Receive Date: 20061005
  Receipt Date: 20060921
  Transmission Date: 20070319
  Serious: Yes (Other)
  Sender: FDA-Public Use
  Company Number: 2006PL000022

PATIENT
  Age: 67 Year
  Sex: Female

DRUGS (2)
  1. AZATHIOPRINE [Suspect]
     Indication: RENAL TRANSPLANT
     Dosage: 100 MG; QD; PO
     Route: 048
     Dates: start: 19820101
  2. PREDNISOLONE [Suspect]
     Indication: RENAL TRANSPLANT
     Dosage: 7.5 MG; QD; PO
     Route: 048
     Dates: start: 19820101

REACTIONS (9)
  - BACTERIAL INFECTION [None]
  - EXCESSIVE GRANULATION TISSUE [None]
  - HISTOLOGY ABNORMAL [None]
  - INFLAMMATION [None]
  - LOCAL SWELLING [None]
  - NECK MASS [None]
  - NECK PAIN [None]
  - PSEUDOMONAS INFECTION [None]
  - SOFT TISSUE DISORDER [None]
